FAERS Safety Report 5474580-1 (Version None)
Quarter: 2007Q4

REPORT INFORMATION
  Report Type: 
  Country: None (occurrence: None)
  Receive Date: 20071002
  Receipt Date: 20070928
  Transmission Date: 20080405
  Serious: Yes (Death, Other)
  Sender: FDA-Public Use
  Company Number: PHNU2007DE02114

PATIENT
  Age: 74 Year
  Sex: Male

DRUGS (3)
  1. ZOMETA [Suspect]
     Indication: METASTASES TO BONE
     Dosage: 4 MG, UNK
     Dates: start: 20070301, end: 20070504
  2. CASODEX [Concomitant]
     Dosage: 50 MG, QD
     Route: 065
     Dates: start: 20070521, end: 20070616
  3. TAMSULOSIN HCL [Concomitant]
     Route: 065

REACTIONS (4)
  - CEREBRAL HAEMORRHAGE [None]
  - HAEMORRHAGE [None]
  - OESOPHAGEAL PERFORATION [None]
  - THROMBOCYTOPENIA [None]
